FAERS Safety Report 6535087-3 (Version None)
Quarter: 2010Q1

REPORT INFORMATION
  Report Type: 
  Country: None (occurrence: None)
  Receive Date: 20100113
  Receipt Date: 20100104
  Transmission Date: 20100710
  Serious: Yes (Hospitalization)
  Sender: FDA-Public Use
  Company Number: US-BIOGENIDEC-2009BI006884

PATIENT
  Age: 63 Year
  Sex: Female

DRUGS (3)
  1. AVONEX [Suspect]
     Indication: MULTIPLE SCLEROSIS
     Route: 030
     Dates: start: 20040318, end: 20091012
  2. AVONEX [Suspect]
     Route: 030
     Dates: start: 20040318, end: 20091012
  3. AVONEX [Suspect]
     Route: 030
     Dates: start: 20091229

REACTIONS (14)
  - BLADDER DISORDER [None]
  - CHILLS [None]
  - CYSTITIS [None]
  - FUNGAL INFECTION [None]
  - GASTROINTESTINAL HYPOMOTILITY [None]
  - HEADACHE [None]
  - IMPAIRED HEALING [None]
  - MOTOR DYSFUNCTION [None]
  - MUSCLE SPASMS [None]
  - PAIN IN EXTREMITY [None]
  - SEPSIS [None]
  - STAPHYLOCOCCAL SKIN INFECTION [None]
  - URINARY INCONTINENCE [None]
  - URINARY TRACT INFECTION [None]
